FAERS Safety Report 5904664-2 (Version None)
Quarter: 2008Q4

REPORT INFORMATION
  Report Type: 
  Country: None (occurrence: None)
  Receive Date: 20081001
  Receipt Date: 20080926
  Transmission Date: 20090506
  Serious: No
  Sender: FDA-Public Use
  Company Number: US-ASTRAZENECA-2008UW20658

PATIENT
  Age: 64 Year
  Sex: Female
  Weight: 68 kg

DRUGS (4)
  1. TAMOXIFEN CITRATE [Suspect]
     Indication: BREAST CANCER
     Route: 048
     Dates: start: 20070801, end: 20080828
  2. TOLAZAMIDE [Concomitant]
  3. VYTORIN [Concomitant]
  4. PROZAC [Concomitant]

REACTIONS (1)
  - ARTHRALGIA [None]
